FAERS Safety Report 12459426 (Version 1)
Quarter: 2016Q2

REPORT INFORMATION
  Report Type: Report from Study
  Country: CA (occurrence: CA)
  Receive Date: 20160613
  Receipt Date: 20160613
  Transmission Date: 20160815
  Serious: Yes (Other)
  Sender: FDA-Public Use
  Company Number: CA-AMGEN-CANSL2016073670

PATIENT
  Age: 46 Year
  Sex: Female

DRUGS (3)
  1. ENBREL [Suspect]
     Active Substance: ETANERCEPT
     Dosage: 12.5 MG, UNK
     Route: 065
  2. ENBREL [Suspect]
     Active Substance: ETANERCEPT
     Indication: RHEUMATOID ARTHRITIS
     Dosage: 50 MG, UNK
     Route: 065
     Dates: start: 20160321
  3. ENBREL [Suspect]
     Active Substance: ETANERCEPT
     Dosage: 25 MG, UNK
     Route: 065

REACTIONS (15)
  - Throat irritation [Recovered/Resolved]
  - Urticaria [Recovered/Resolved]
  - Rash erythematous [Unknown]
  - Asthma [Unknown]
  - Eye pruritus [Unknown]
  - Eye burns [Unknown]
  - Joint swelling [Unknown]
  - Swelling [Unknown]
  - Vulvovaginal pruritus [Recovered/Resolved]
  - Arthralgia [Unknown]
  - Abdominal pain [Recovering/Resolving]
  - Oral pruritus [Recovered/Resolved]
  - Rash generalised [Recovering/Resolving]
  - Pruritus [Recovered/Resolved]
  - Rash pruritic [Unknown]

NARRATIVE: CASE EVENT DATE: 2016
